FAERS Safety Report 4529575-9 (Version None)
Quarter: 2004Q4

REPORT INFORMATION
  Report Type: 
  Country: None (occurrence: None)
  Receive Date: 20041215
  Receipt Date: 20041215
  Transmission Date: 20050328
  Serious: Yes (Life-Threatening)
  Sender: FDA-Public Use
  Company Number: None

PATIENT
  Age: 60 Year
  Sex: Female

DRUGS (3)
  1. VOLTAREN [Suspect]
     Indication: ARTHRITIS
     Dosage: 50 MG BID PO
     Route: 048
     Dates: start: 20040923, end: 20041015
  2. LEVOXYL [Concomitant]
  3. PENICILLIN VK [Concomitant]

REACTIONS (2)
  - HEPATIC FAILURE [None]
  - TOXIC EPIDERMAL NECROLYSIS [None]
